FAERS Safety Report 7331655-X (Version None)
Quarter: 2011Q1

REPORT INFORMATION
  Report Type: 
  Country: None (occurrence: None)
  Receive Date: 20110228
  Receipt Date: 20110228
  Transmission Date: 20110831
  Serious: Yes (Life-Threatening, Other)
  Sender: FDA-Public Use
  Company Number: None

PATIENT
  Age: 46 Year
  Sex: Female
  Weight: 49.8957 kg

DRUGS (1)
  1. BUPROPION 300MG CVS CAREMARK [Suspect]
     Indication: DEPRESSION
     Dosage: 1 TABLET 1 DAILY PO
     Route: 048
     Dates: start: 20100801, end: 20110201

REACTIONS (2)
  - PRODUCT SUBSTITUTION ISSUE [None]
  - DEPRESSION SUICIDAL [None]
